FAERS Safety Report 26081841 (Version 1)
Quarter: 2025Q4

REPORT INFORMATION
  Report Type: Spontaneous
  Country: EU (occurrence: EU)
  Receive Date: 20251124
  Receipt Date: 20251124
  Transmission Date: 20260118
  Serious: Yes (Other)
  Sender: HIKMA
  Company Number: EU-MLMSERVICE-20251110-PI696910-00218-4

PATIENT
  Age: 60 Year
  Sex: Male

DRUGS (11)
  1. CYCLOPHOSPHAMIDE [Suspect]
     Active Substance: CYCLOPHOSPHAMIDE
     Indication: B-cell type acute leukaemia
     Dosage: PRE-PHASE THERAPY: D3-5; INDUCTION PHASE II: D21, 35
     Route: 065
  2. CYTARABINE [Suspect]
     Active Substance: CYTARABINE
     Indication: B-cell type acute leukaemia
     Dosage: INDUCTION PHASE I: D13; INDUCTION PHASE II: D21, 28, 35
     Route: 037
  3. CYTARABINE [Suspect]
     Active Substance: CYTARABINE
     Dosage: INDUCTION PHASE II: D22-25, 29-32
     Route: 065
  4. DEXAMETHASONE [Suspect]
     Active Substance: DEXAMETHASONE
     Dosage: INDUCTION PHASE I: D13; INDUCTION PHASE II: D21, 28, 35
     Route: 037
  5. DEXAMETHASONE [Suspect]
     Active Substance: DEXAMETHASONE
     Indication: B-cell type acute leukaemia
     Dosage: PRE-PHASE THERAPY: D1-5; INDUCTION PHASE I: D7, 8, 14-17; INDUCTION PHASE II: D7, 8, 14-17
     Route: 065
  6. IDARUBICIN [Suspect]
     Active Substance: IDARUBICIN
     Indication: B-cell type acute leukaemia
     Dosage: INDUCTION PHASE I: D7, 8, 14, 15
     Route: 065
  7. METHOTREXATE [Suspect]
     Active Substance: METHOTREXATE
     Dosage: CONSOLIDATION CHEMOTHERAPY: HDMTX D2, 16
     Route: 065
  8. METHOTREXATE [Suspect]
     Active Substance: METHOTREXATE
     Indication: B-cell type acute leukaemia
     Dosage: PRE-PHASE THERAPY: D5; INDUCTION PHASE I: D13; INDUCTION PHASE II: D21, 28, 35
     Route: 037
  9. PEG/L-ASPARAGINASE [Suspect]
     Active Substance: PEGASPARGASE
     Indication: B-cell type acute leukaemia
     Dosage: CONSOLIDATION CHEMOTHERAPY: D3, 17
     Route: 065
  10. RITUXIMAB [Suspect]
     Active Substance: RITUXIMAB
     Indication: B-cell type acute leukaemia
     Dosage: INDUCTION PHASE I: D6; INDUCTION PHASE II: D20; CONSOLIDATION CHEMOTHERAPY: D1
     Route: 065
  11. VINCRISTINE [Suspect]
     Active Substance: VINCRISTINE
     Indication: B-cell type acute leukaemia
     Dosage: INDUCTION PHASE I: D7, 14
     Route: 065

REACTIONS (1)
  - Hyperbilirubinaemia [Unknown]
